APPROVED DRUG PRODUCT: PHENTERMINE HYDROCHLORIDE AND TOPIRAMATE
Active Ingredient: PHENTERMINE HYDROCHLORIDE; TOPIRAMATE
Strength: EQ 11.25MG BASE;69MG
Dosage Form/Route: CAPSULE, EXTENDED RELEASE;ORAL
Application: A204982 | Product #003 | TE Code: AB
Applicant: ACTAVIS LABORATORIES FL INC
Approved: Jun 25, 2024 | RLD: No | RS: No | Type: RX